FAERS Safety Report 24344658 (Version 1)
Quarter: 2024Q3

REPORT INFORMATION
  Report Type: Spontaneous
  Country: CA (occurrence: CA)
  Receive Date: 20240920
  Receipt Date: 20240920
  Transmission Date: 20241016
  Serious: Yes (Hospitalization, Other)
  Sender: TEVA
  Company Number: CA-TEVA-VS-3242581

PATIENT
  Age: 78 Year
  Sex: Female

DRUGS (1)
  1. PACLITAXEL [Suspect]
     Active Substance: PACLITAXEL
     Indication: Ovarian cancer metastatic
     Dosage: DOSE FORM: LIQUID INTRAVENOUS
     Route: 065

REACTIONS (3)
  - Septic arthritis staphylococcal [Unknown]
  - Condition aggravated [Unknown]
  - Pyoderma gangrenosum [Unknown]
